FAERS Safety Report 6980400-6 (Version None)
Quarter: 2010Q3

REPORT INFORMATION
  Report Type: 
  Country: None (occurrence: None)
  Receive Date: 20100908
  Receipt Date: 20100831
  Transmission Date: 20110219
  Serious: Yes (Death, Other)
  Sender: FDA-Public Use
  Company Number: 2010JP005151

PATIENT
  Age: 57 Year
  Sex: Female
  Weight: 83 kg

DRUGS (12)
  1. PROGRAF [Suspect]
     Indication: LIVER TRANSPLANT
     Dosage: ORAL, ORAL
  2. METHYLPREDNISOLONE [Concomitant]
  3. PREDNISOLONE [Concomitant]
  4. GAMMA GLOBULIN (IMMUNOGLOBULIN) [Concomitant]
  5. FLOMOXEF [Concomitant]
  6. FOSFLUCONAZOLE [Concomitant]
  7. MEROPENEM [Concomitant]
  8. VANCOMYCIN [Concomitant]
  9. MYCOPHENOLATE MOFETIL [Concomitant]
  10. LACTULOSE [Concomitant]
  11. CIPROFLOXACIN [Concomitant]
  12. FUNGUARD (MICAFUNGIN) [Concomitant]

REACTIONS (12)
  - ACINETOBACTER TEST POSITIVE [None]
  - ANTIBIOTIC RESISTANT STAPHYLOCOCCUS TEST POSITIVE [None]
  - ASPARTATE AMINOTRANSFERASE INCREASED [None]
  - CANDIDA TEST POSITIVE [None]
  - CHOLANGITIS [None]
  - CONTINUOUS HAEMODIAFILTRATION [None]
  - ENTEROCOCCUS TEST POSITIVE [None]
  - HEPATIC NECROSIS [None]
  - JAUNDICE [None]
  - LIVER ABSCESS [None]
  - LIVER TRANSPLANT REJECTION [None]
  - PYREXIA [None]
